FAERS Safety Report 9161141 (Version 7)
Quarter: 2014Q2

REPORT INFORMATION
  Report Type: Report from Study
  Country: US (occurrence: US)
  Receive Date: 20130313
  Receipt Date: 20140410
  Transmission Date: 20141212
  Serious: Yes (Hospitalization, Other)
  Sender: FDA-Public Use
  Company Number: US-009507513-1303USA004346

PATIENT
  Age: 44 Year
  Sex: Male
  Weight: 111 kg

DRUGS (4)
  1. VICTRELIS [Suspect]
     Indication: CHRONIC HEPATITIS C
     Dosage: 2400 MG DAILY MOST RECENT DOSE ON 7-JUN-2012
     Dates: start: 20120407
  2. REBETOL [Suspect]
     Indication: CHRONIC HEPATITIS C
     Dosage: ON 7-JUN-2012, MOST RECENT DOSE PRIOR TO SAE WAS 400 MG
     Route: 048
     Dates: start: 20120310
  3. REBETOL [Suspect]
     Dosage: DAILY 1200 MG
     Dates: start: 20120411
  4. PEGINTERFERON ALFA-2A [Suspect]
     Indication: CHRONIC HEPATITIS C
     Dosage: 90 MCG MOST RECENT DOSE PRIOR TO SAE ON11-JUN-2012
     Dates: start: 20120310

REACTIONS (3)
  - Pancytopenia [Not Recovered/Not Resolved]
  - Skin ulcer [Not Recovered/Not Resolved]
  - Hepatic encephalopathy [Recovered/Resolved]
